FAERS Safety Report 9998591 (Version 1)
Quarter: 2014Q1

REPORT INFORMATION
  Report Type: Spontaneous
  Country: US (occurrence: US)
  Receive Date: 20140312
  Receipt Date: 20140312
  Transmission Date: 20141002
  Serious: No
  Sender: FDA-Public Use
  Company Number: US-BIOGENIDEC-2014BI018999

PATIENT
  Age: 61 Year
  Sex: Female

DRUGS (15)
  1. TECFIDERA [Suspect]
     Indication: MULTIPLE SCLEROSIS
     Route: 048
     Dates: start: 20131115
  2. AMPYRA [Concomitant]
  3. CRESTOR [Concomitant]
  4. ENABLEX [Concomitant]
  5. FENOFIBRATE [Concomitant]
  6. LEVOTHYROXINE SODIUM [Concomitant]
  7. LOSARTAN POTASSIUM [Concomitant]
  8. METFORMIN HCL [Concomitant]
  9. NABUMETONE [Concomitant]
  10. NORTRIPTYLINE HCL [Concomitant]
  11. OMEPRAZOLE [Concomitant]
  12. OXYBUTYNIN CHLORIDE ER [Concomitant]
  13. TOPIRAMATE [Concomitant]
  14. TRILIPIX [Concomitant]
  15. VITAMIN B-12 [Concomitant]

REACTIONS (3)
  - Headache [Recovered/Resolved]
  - Nausea [Recovered/Resolved]
  - Vomiting [Recovered/Resolved]
